FAERS Safety Report 17282965 (Version 4)
Quarter: 2020Q1

REPORT INFORMATION
  Report Type: Spontaneous
  Country: JP (occurrence: JP)
  Receive Date: 20200117
  Receipt Date: 20200205
  Transmission Date: 20200409
  Serious: Yes (Other)
  Sender: FDA-Public Use
  Company Number: JP-JNJFOC-20200120426

PATIENT
  Age: 58 Year
  Sex: Female
  Weight: 57 kg

DRUGS (5)
  1. RISPERDAL CONSTA [Suspect]
     Active Substance: RISPERIDONE
     Indication: SCHIZOPHRENIA
     Dosage: RISPERIDONE:25MG
     Route: 030
     Dates: end: 201911
  2. CONTOMIN [Concomitant]
     Active Substance: CHLORPROMAZINE
     Route: 048
  3. INVEGA [Concomitant]
     Active Substance: PALIPERIDONE
     Indication: SCHIZOPHRENIA
     Dosage: PALIPERIDONE:3MG
     Route: 048
     Dates: start: 201911
  4. ZYPREXA [Concomitant]
     Active Substance: OLANZAPINE
     Route: 048
     Dates: start: 20190515
  5. DEPAKENE-R [Concomitant]
     Active Substance: VALPROATE SODIUM
     Route: 048

REACTIONS (2)
  - Therapeutic product effect increased [Unknown]
  - Chronic kidney disease [Not Recovered/Not Resolved]
